FAERS Safety Report 5261971-7 (Version None)
Quarter: 2007Q1

REPORT INFORMATION
  Report Type: 
  Country: None (occurrence: None)
  Receive Date: 20070308
  Receipt Date: 20070226
  Transmission Date: 20070707
  Serious: Yes (Hospitalization)
  Sender: FDA-Public Use
  Company Number: 2007SP002922

PATIENT
  Age: 45 Year
  Sex: Male
  Weight: 83.9154 kg

DRUGS (2)
  1. PEG-INTRON [Suspect]
     Indication: HEPATITIS C
     Dosage: QW;
     Dates: start: 20060526, end: 20070126
  2. REBETOL [Suspect]
     Indication: HEPATITIS C
     Dosage: 600 MG;BID;PO
     Route: 048
     Dates: start: 20060526, end: 20070220

REACTIONS (7)
  - BLINDNESS TRANSIENT [None]
  - HYPERTENSION [None]
  - INTRACRANIAL ANEURYSM [None]
  - NECK PAIN [None]
  - RETINAL EXUDATES [None]
  - SCOTOMA [None]
  - SUBARACHNOID HAEMORRHAGE [None]
